FAERS Safety Report 11498485 (Version 1)
Quarter: 2015Q3

REPORT INFORMATION
  Report Type: Spontaneous
  Country: DZ (occurrence: FR)
  Receive Date: 20150911
  Receipt Date: 20150911
  Transmission Date: 20151125
  Serious: Yes (Other)
  Sender: FDA-Public Use
  Company Number: DZ-IMPAX LABORATORIES, INC-2015-IPXL-00924

PATIENT
  Age: 40 Day
  Sex: Male

DRUGS (2)
  1. DIVALPROEX SODIUM ER [Suspect]
     Active Substance: DIVALPROEX SODIUM
     Indication: SEIZURE
     Dosage: 20 MG/KG, DAILY
     Route: 065
  2. NOVOSEVEN [Interacting]
     Active Substance: COAGULATION FACTOR VIIA RECOMBINANT HUMAN
     Indication: FACTOR VII DEFICIENCY
     Dosage: UNK
     Route: 065

REACTIONS (2)
  - Peritoneal haemorrhage [Recovered/Resolved]
  - Drug interaction [Recovered/Resolved]
